FAERS Safety Report 7151619-9 (Version None)
Quarter: 2010Q4

REPORT INFORMATION
  Report Type: 
  Country: None (occurrence: None)
  Receive Date: 20101210
  Receipt Date: 20101203
  Transmission Date: 20110411
  Serious: Yes (Hospitalization)
  Sender: FDA-Public Use
  Company Number: US-US-EMD SERONO, INC.-7030887

PATIENT
  Sex: Female
  Weight: 67 kg

DRUGS (2)
  1. REBIF [Suspect]
     Indication: MULTIPLE SCLEROSIS
     Route: 058
     Dates: start: 20081202
  2. UNSPECIFIED MEDICATIONS [Concomitant]

REACTIONS (4)
  - GASTROINTESTINAL VIRAL INFECTION [None]
  - HEADACHE [None]
  - MOVEMENT DISORDER [None]
  - URINARY TRACT INFECTION [None]
